FAERS Safety Report 7210228-3 (Version None)
Quarter: 2010Q4

REPORT INFORMATION
  Report Type: 
  Country: None (occurrence: None)
  Receive Date: 20101223
  Receipt Date: 20101208
  Transmission Date: 20110411
  Serious: Yes (Death)
  Sender: FDA-Public Use
  Company Number: AE 2010-411

PATIENT
  Age: 55 Year
  Sex: Female

DRUGS (16)
  1. FAZACLO ODT [Suspect]
     Indication: SCHIZOPHRENIA
     Dosage: 300 MG DAILY PO
     Route: 048
     Dates: start: 20090904, end: 20101205
  2. CYMBALTA [Concomitant]
  3. BENZTROPINE MESYLATE [Concomitant]
  4. KAPIDEX [Concomitant]
  5. LIPITOR [Concomitant]
  6. STELAZINE [Concomitant]
  7. ACTOS [Concomitant]
  8. PLAVIX [Concomitant]
  9. CLARITIN [Concomitant]
  10. VALIUM [Concomitant]
  11. HYDROCODONE [Concomitant]
  12. DIOVAN [Concomitant]
  13. JANUMET [Concomitant]
  14. METFORMIN [Concomitant]
  15. LEVOTHYROXINE [Concomitant]
  16. DOXYCYCLINE [Concomitant]

REACTIONS (1)
  - MYOCARDIAL INFARCTION [None]
